FAERS Safety Report 5299914-2 (Version None)
Quarter: 2007Q2

REPORT INFORMATION
  Report Type: 
  Country: None (occurrence: None)
  Receive Date: 20070410
  Receipt Date: 20070328
  Transmission Date: 20071010
  Serious: No
  Sender: FDA-Public Use
  Company Number: B0459727A

PATIENT
  Age: 68 Year
  Sex: Male
  Weight: 77.8372 kg

DRUGS (9)
  1. LANOXIN [Suspect]
     Dosage: .125 MG PER DAY
  2. FUROSEMIDE [Suspect]
     Dosage: 80 MG / TWICE PER DAY
  3. ASPIRIN [Suspect]
     Dosage: 75 MG/ PER DAY
  4. ACIPIMOX (FORMULATION UNKNOWN) (ACIPIMOX) [Suspect]
     Dosage: 250 MG / TWICE PER DAY
  5. AMIODARONE (FORMULATION UKNOWN) (AMIODARONE) [Suspect]
     Dosage: 200 MG / PER DAY
  6. BISOPROLOL (FORMULATION UNKNOWN) (BISOPROLOL) [Suspect]
     Dosage: 7.5 MG / SINGLE DOSE
  7. EZETIMIBE [Suspect]
     Dosage: 10 MG / PER DAY
  8. LANSOPRAZOLE [Suspect]
     Dosage: 30 MG / PER DAY
  9. PERINDOPRIL (FORMULATION UNKNOWN) (PERINDOPRIL) [Suspect]
     Dosage: 2 MG / PER DAY

REACTIONS (8)
  - DECREASED ACTIVITY [None]
  - DISSOCIATION [None]
  - DIZZINESS [None]
  - DYSPNOEA [None]
  - FATIGUE [None]
  - OEDEMA [None]
  - PARAESTHESIA [None]
  - VENTRICULAR DYSFUNCTION [None]
